FAERS Safety Report 10688903 (Version 2)
Quarter: 2015Q1

REPORT INFORMATION
  Report Type: Spontaneous
  Country: US (occurrence: US)
  Receive Date: 20150103
  Receipt Date: 20150103
  Transmission Date: 20150720
  Serious: No
  Sender: FDA-Public Use
  Company Number: US-BRISTOL-MYERS SQUIBB COMPANY-21576095

PATIENT
  Sex: Male
  Weight: 131.52 kg

DRUGS (8)
  1. RAMIPRIL. [Concomitant]
     Active Substance: RAMIPRIL
  2. BYDUREON [Suspect]
     Active Substance: EXENATIDE
     Indication: TYPE 2 DIABETES MELLITUS
     Dosage: SINGLE DOSE TRAY
     Route: 058
  3. LANTUS [Concomitant]
     Active Substance: INSULIN GLARGINE
  4. CELEBREX [Concomitant]
     Active Substance: CELECOXIB
  5. COLCRYS [Concomitant]
     Active Substance: COLCHICINE
     Indication: GOUT
  6. METFORMIN HYDROCHLORIDE. [Concomitant]
     Active Substance: METFORMIN HYDROCHLORIDE
  7. PRAVASTATIN SODIUM. [Concomitant]
     Active Substance: PRAVASTATIN SODIUM
  8. ALLOPURINOL. [Concomitant]
     Active Substance: ALLOPURINOL
     Indication: GOUT

REACTIONS (4)
  - Injection site nodule [Not Recovered/Not Resolved]
  - Contusion [Unknown]
  - Product quality issue [Unknown]
  - Injection site haemorrhage [Unknown]
